FAERS Safety Report 7753485-7 (Version None)
Quarter: 2011Q3

REPORT INFORMATION
  Report Type: 
  Country: None (occurrence: None)
  Receive Date: 20110915
  Receipt Date: 20110815
  Transmission Date: 20111222
  Serious: Yes (Hospitalization, Other)
  Sender: FDA-Public Use
  Company Number: PHFR2011GB01828

PATIENT
  Sex: Male

DRUGS (8)
  1. OLANZAPINE [Concomitant]
     Dosage: 5 MG, BID
     Route: 065
  2. CLOZAPINE [Suspect]
     Indication: SCHIZOPHRENIA
     Route: 048
     Dates: start: 20080905, end: 20110307
  3. ASPIRIN [Concomitant]
     Dosage: 75 MG, QD
     Route: 065
  4. AMISULPRIDE [Suspect]
     Indication: SCHIZOPHRENIA
     Route: 065
  5. SENNA [Concomitant]
     Route: 065
  6. VALPROATE SODIUM [Concomitant]
     Dosage: 1 G, BID
     Route: 065
  7. SULPIRIDE [Concomitant]
     Route: 065
  8. RANITIDINE [Concomitant]
     Dosage: 150 MG, BID
     Route: 065

REACTIONS (13)
  - PARKINSONISM [None]
  - COMA SCALE ABNORMAL [None]
  - PNEUMONIA [None]
  - CONVULSION [None]
  - SCHIZOPHRENIA [None]
  - LOWER RESPIRATORY TRACT INFECTION [None]
  - VENTRICULAR DYSFUNCTION [None]
  - LOSS OF CONSCIOUSNESS [None]
  - NEUROLEPTIC MALIGNANT SYNDROME [None]
  - BRADYCARDIA [None]
  - SICK SINUS SYNDROME [None]
  - OEDEMA [None]
  - ELECTROCARDIOGRAM QT PROLONGED [None]
